FAERS Safety Report 20483545 (Version 2)
Quarter: 2022Q1

REPORT INFORMATION
  Report Type: Spontaneous
  Country: IT (occurrence: IT)
  Receive Date: 20220217
  Receipt Date: 20220301
  Transmission Date: 20220423
  Serious: No
  Sender: FDA-Public Use
  Company Number: IT-LUPIN PHARMACEUTICALS INC.-2022-02078

PATIENT
  Age: 60 Year
  Sex: Female

DRUGS (2)
  1. OXYCODONE [Suspect]
     Active Substance: OXYCODONE
     Indication: Breakthrough pain
     Dosage: UNK
     Route: 065
     Dates: start: 2019
  2. FENTANYL [Suspect]
     Active Substance: FENTANYL
     Indication: Breakthrough pain
     Dosage: UNK
     Route: 060
     Dates: start: 2019

REACTIONS (2)
  - Insomnia [Recovering/Resolving]
  - Drug ineffective [Unknown]
